FAERS Safety Report 6657173-X (Version None)
Quarter: 2010Q1

REPORT INFORMATION
  Report Type: 
  Country: None (occurrence: None)
  Receive Date: 20100330
  Receipt Date: 20100217
  Transmission Date: 20100710
  Serious: No
  Sender: FDA-Public Use
  Company Number: US-JNJFOC-20100207882

PATIENT
  Sex: Male
  Weight: 99.79 kg

DRUGS (6)
  1. INVEGA SUSTENNA [Suspect]
     Indication: SCHIZOAFFECTIVE DISORDER
     Route: 030
  2. RISPERDAL [Concomitant]
     Indication: SCHIZOAFFECTIVE DISORDER
     Route: 048
  3. ABILIFY [Concomitant]
     Indication: SCHIZOAFFECTIVE DISORDER
  4. LEXAPRO [Concomitant]
     Indication: ANTIDEPRESSANT THERAPY
  5. TRAZODONE [Concomitant]
     Indication: ANTIDEPRESSANT THERAPY
  6. ROZEREM [Concomitant]
     Indication: SLEEP DISORDER

REACTIONS (5)
  - DYSTONIA [None]
  - MOVEMENT DISORDER [None]
  - PAIN IN JAW [None]
  - SWELLING FACE [None]
  - SWOLLEN TONGUE [None]
